FAERS Safety Report 5092033-X (Version None)
Quarter: 2006Q3

REPORT INFORMATION
  Report Type: 
  Country: None (occurrence: None)
  Receive Date: 20060825
  Receipt Date: 20060815
  Transmission Date: 20061208
  Serious: Yes (Hospitalization)
  Sender: FDA-Public Use
  Company Number: 2006100255

PATIENT
  Age: 70 Year
  Sex: Female

DRUGS (6)
  1. EPIRUBICIN [Suspect]
     Indication: DRUG USE FOR UNKNOWN INDICATION
     Dates: start: 20060308
  2. CARBOPLATIN [Suspect]
     Indication: DRUG USE FOR UNKNOWN INDICATION
     Dosage: 6 MG, INTRAVENOUS
     Route: 042
     Dates: start: 20060308
  3. ACETYLSALICYLIC ACID [Concomitant]
  4. BENDROFLUMETHIAZIDE [Concomitant]
  5. FELODIPINE [Concomitant]
  6. LACTULOSE [Concomitant]

REACTIONS (1)
  - ANGINA PECTORIS [None]
